FAERS Safety Report 15933661 (Version 1)
Quarter: 2019Q1

REPORT INFORMATION
  Report Type: Report from Study
  Country: US (occurrence: US)
  Receive Date: 20190207
  Receipt Date: 20190207
  Transmission Date: 20190417
  Serious: Yes (Hospitalization)
  Sender: FDA-Public Use
  Company Number: US-EXELIXIS-XL18419018590

PATIENT
  Age: 14 Year
  Sex: Female

DRUGS (2)
  1. XL184 [Suspect]
     Active Substance: CABOZANTINIB
     Indication: EWING^S SARCOMA
     Dosage: 40 MG/M2, QD
     Route: 048
     Dates: start: 20180604, end: 20181221
  2. XL184 [Suspect]
     Active Substance: CABOZANTINIB
     Dosage: UNK
     Dates: start: 20181223

REACTIONS (4)
  - Dehydration [Unknown]
  - Blood creatinine increased [Unknown]
  - Influenza [Unknown]
  - Pyrexia [Unknown]

NARRATIVE: CASE EVENT DATE: 20181222
